FAERS Safety Report 8449797-4 (Version None)
Quarter: 2012Q2

REPORT INFORMATION
  Report Type: 
  Country: None (occurrence: None)
  Receive Date: 20120614
  Receipt Date: 20120614
  Transmission Date: 20120825
  Serious: Yes (Other)
  Sender: FDA-Public Use
  Company Number: None

PATIENT
  Age: 49 Year
  Sex: Female

DRUGS (1)
  1. COPAXONE [Suspect]
     Indication: MULTIPLE SCLEROSIS
     Dosage: 20MG DAILY SQ
     Route: 058
     Dates: start: 20100923, end: 20120528

REACTIONS (5)
  - APHONIA [None]
  - JOINT SWELLING [None]
  - OEDEMA MOUTH [None]
  - EYE SWELLING [None]
  - OEDEMA PERIPHERAL [None]
